FAERS Safety Report 11217146 (Version 1)
Quarter: 2015Q2

REPORT INFORMATION
  Report Type: Spontaneous
  Country: JP (occurrence: JP)
  Receive Date: 20150624
  Receipt Date: 20150624
  Transmission Date: 20150821
  Serious: Yes (Other)
  Sender: FDA-Public Use
  Company Number: JP-JNJFOC-20150614008

PATIENT
  Sex: Male

DRUGS (2)
  1. RIUP X5 [Suspect]
     Active Substance: MINOXIDIL
     Route: 061
  2. RIUP X5 [Suspect]
     Active Substance: MINOXIDIL
     Indication: ALOPECIA
     Route: 061
     Dates: end: 2015

REACTIONS (3)
  - Mitral valve incompetence [Unknown]
  - Supraventricular extrasystoles [Unknown]
  - Aortic valve incompetence [Unknown]
